FAERS Safety Report 4285844-1 (Version None)
Quarter: 2004Q1

REPORT INFORMATION
  Report Type: 
  Country: None (occurrence: None)
  Receive Date: 20040203
  Receipt Date: 20040121
  Transmission Date: 20041129
  Serious: No
  Sender: FDA-Public Use
  Company Number: 2004SE00286

PATIENT
  Age: 75 Year
  Sex: Male

DRUGS (3)
  1. BLOPRESS [Suspect]
     Indication: HYPERTENSION
     Dosage: 8 MG QD PO
     Route: 048
     Dates: end: 20040113
  2. BLOPRESS [Suspect]
     Indication: HYPERTENSION
     Dosage: 16 MG DAILY PO
     Route: 048
     Dates: start: 20040114
  3. ANAESTHETICS [Concomitant]

REACTIONS (4)
  - ANAESTHETIC COMPLICATION VASCULAR [None]
  - BLOOD PRESSURE SYSTOLIC INCREASED [None]
  - MEDICATION ERROR [None]
  - PROCEDURAL HYPOTENSION [None]
